FAERS Safety Report 4743612-8 (Version None)
Quarter: 2005Q3

REPORT INFORMATION
  Report Type: 
  Country: None (occurrence: None)
  Receive Date: 20050810
  Receipt Date: 20050810
  Transmission Date: 20060218
  Serious: Yes (Other)
  Sender: FDA-Public Use
  Company Number: None

PATIENT
  Age: 53 Year
  Sex: Female
  Weight: 68.0396 kg

DRUGS (1)
  1. AMBIEN [Suspect]
     Indication: SLEEP DISORDER THERAPY
     Dosage: 10 MG;  1 PRN; PO
     Route: 048

REACTIONS (3)
  - AMNESIA [None]
  - FEELING ABNORMAL [None]
  - TRANCE [None]
